FAERS Safety Report 13772550 (Version 2)
Quarter: 2017Q3

REPORT INFORMATION
  Report Type: Report from Study
  Country: CN (occurrence: CN)
  Receive Date: 20170720
  Receipt Date: 20170802
  Transmission Date: 20171127
  Serious: Yes (Hospitalization, Other)
  Sender: FDA-Public Use
  Company Number: CN-BAYER-2017-133822

PATIENT
  Age: 62 Year
  Sex: Male

DRUGS (1)
  1. STIVARGA [Suspect]
     Active Substance: REGORAFENIB
     Indication: COLORECTAL CANCER
     Dosage: 160 MG, QD
     Route: 048
     Dates: start: 201706, end: 2017

REACTIONS (4)
  - Gastric haemorrhage [None]
  - Hospitalisation [None]
  - Hiccups [Recovered/Resolved]
  - Pyrexia [None]

NARRATIVE: CASE EVENT DATE: 2017
